FAERS Safety Report 18980724 (Version 1)
Quarter: 2021Q1

REPORT INFORMATION
  Report Type: Spontaneous
  Country: US (occurrence: US)
  Receive Date: 20210308
  Receipt Date: 20210308
  Transmission Date: 20210420
  Serious: Yes (Other)
  Sender: FDA-Public Use
  Company Number: US-CELLTRION-2021-US-004426

PATIENT
  Age: 65 Year
  Sex: Male

DRUGS (2)
  1. AUGMENTIN [Concomitant]
     Active Substance: AMOXICILLIN\CLAVULANATE POTASSIUM
     Indication: CELLULITIS
  2. LEVOFLOXACIN (NON?SPECIFIC) [Suspect]
     Active Substance: LEVOFLOXACIN
     Indication: CELLULITIS

REACTIONS (1)
  - Aortitis [Unknown]
